FAERS Safety Report 14874206 (Version 1)
Quarter: 2018Q2

REPORT INFORMATION
  Report Type: Spontaneous
  Country: US (occurrence: US)
  Receive Date: 20180510
  Receipt Date: 20180510
  Transmission Date: 20180711
  Serious: No
  Sender: FDA-Public Use
  Company Number: US-GLAXOSMITHKLINE-US2018079497

PATIENT
  Sex: Male

DRUGS (2)
  1. MUPIROCIN OINTMENT [Suspect]
     Active Substance: MUPIROCIN
     Indication: STAPHYLOCOCCAL INFECTION
     Route: 045
  2. BACTROBAN [Suspect]
     Active Substance: MUPIROCIN\MUPIROCIN CALCIUM

REACTIONS (5)
  - Product use issue [Unknown]
  - Off label use [Unknown]
  - Drug dose omission [Unknown]
  - Product supply issue [Unknown]
  - Nasal discomfort [Recovered/Resolved]
